FAERS Safety Report 8358632 (Version 3)
Quarter: 2013Q3

REPORT INFORMATION
  Report Type: Report from Study
  Country: CA (occurrence: CA)
  Receive Date: 20120127
  Receipt Date: 20130925
  Transmission Date: 20140515
  Serious: Yes (Other)
  Sender: FDA-Public Use
  Company Number: PHHY2012CA005437

PATIENT
  Sex: Male

DRUGS (1)
  1. SANDOSTATIN LAR [Suspect]
     Indication: PANCREATIC NEUROENDOCRINE TUMOUR METASTATIC
     Dosage: 20 MG, EVERY 4 WEEKS
     Route: 030
     Dates: start: 20101202

REACTIONS (3)
  - Gait disturbance [Unknown]
  - Blood pressure systolic increased [Unknown]
  - Back pain [Unknown]
